FAERS Safety Report 10146507 (Version 1)
Quarter: 2014Q2

REPORT INFORMATION
  Report Type: Spontaneous
  Country: MX (occurrence: MX)
  Receive Date: 20140501
  Receipt Date: 20140501
  Transmission Date: 20141212
  Serious: Yes (Death)
  Sender: FDA-Public Use
  Company Number: MX-PFIZER INC-2014118909

PATIENT
  Age: 87 Year
  Sex: Female
  Weight: 60 kg

DRUGS (5)
  1. NORVAS [Suspect]
     Indication: HYPERTENSION
     Dosage: 1 TABLET AT NIGHTS
     Route: 048
  2. BI-EUGLUCON [Concomitant]
     Indication: TYPE 2 DIABETES MELLITUS
     Dosage: 1 TABLET AT DAY AND NIGHT
     Route: 048
  3. LANOXIN [Concomitant]
     Indication: CARDIAC DISORDER
     Dosage: 5 DAYS A  WEEK
     Route: 048
  4. PHARMATON [Concomitant]
     Dosage: DAILY
     Route: 048
  5. CALIDERM [Concomitant]
     Indication: DRY SKIN
     Dosage: ALL MORNINGS
     Route: 061

REACTIONS (5)
  - Pulmonary thrombosis [Fatal]
  - Sepsis [Fatal]
  - Renal failure [Fatal]
  - Peripheral arterial occlusive disease [Fatal]
  - Diabetes mellitus [Fatal]
